FAERS Safety Report 8986098 (Version 1)
Quarter: 2012Q4

REPORT INFORMATION
  Report Type: Spontaneous
  Country: DK (occurrence: None)
  Receive Date: 20121217
  Receipt Date: 20121217
  Transmission Date: 20130627
  Serious: Yes (Hospitalization)
  Sender: FDA-Public Use
  Company Number: 2012MA014073

PATIENT
  Age: 56 Year
  Sex: Female

DRUGS (8)
  1. PACLITAXEL [Suspect]
     Indication: OVARIAN CANCER
     Route: 042
     Dates: start: 20110518
  2. CARBOPLATIN [Suspect]
     Indication: OVARIAN CANCER
     Route: 042
     Dates: start: 20110518
  3. FARLETUZUMAB [Suspect]
     Indication: OVARIAN CANCER
     Route: 042
     Dates: start: 20110518
  4. HYDROCORTISONE [Concomitant]
  5. PARACETAMOL [Concomitant]
  6. ANAESTHETIC [Concomitant]
  7. CONTRAST MEDIA [Concomitant]
  8. NSAIDS [Concomitant]

REACTIONS (1)
  - Fatigue [None]
